FAERS Safety Report 23024359 (Version 1)
Quarter: 2023Q4

REPORT INFORMATION
  Report Type: Spontaneous
  Country: ES (occurrence: ES)
  Receive Date: 20231004
  Receipt Date: 20231004
  Transmission Date: 20240110
  Serious: Yes (Hospitalization, Other)
  Sender: FDA-Public Use
  Company Number: ES-MLMSERVICE-20230911-4536490-1

PATIENT
  Age: 23 Year
  Sex: Male

DRUGS (3)
  1. VALPROIC ACID [Suspect]
     Active Substance: VALPROIC ACID
     Indication: Antipsychotic therapy
     Dosage: UNK(UP TO 1000/MG PER DAY)
     Route: 065
  2. RISPERIDONE [Suspect]
     Active Substance: RISPERIDONE
     Indication: Antipsychotic therapy
     Dosage: 6 MILLIGRAM, ONCE A DAY
     Route: 065
  3. RISPERIDONE [Suspect]
     Active Substance: RISPERIDONE
     Indication: Psychotic disorder

REACTIONS (2)
  - Hyperammonaemic encephalopathy [Recovered/Resolved]
  - Off label use [Recovered/Resolved]
